FAERS Safety Report 13802168 (Version 1)
Quarter: 2017Q3

REPORT INFORMATION
  Report Type: Spontaneous
  Country: US (occurrence: US)
  Receive Date: 20170727
  Receipt Date: 20170727
  Transmission Date: 20171127
  Serious: Yes (Other)
  Sender: FDA-Public Use
  Company Number: None

PATIENT
  Sex: Male
  Weight: 51.75 kg

DRUGS (3)
  1. TENEX [Suspect]
     Active Substance: GUANFACINE HYDROCHLORIDE
     Indication: POST-TRAUMATIC STRESS DISORDER
     Route: 048
     Dates: end: 20170426
  2. TENEX [Suspect]
     Active Substance: GUANFACINE HYDROCHLORIDE
     Indication: ANXIETY
     Route: 048
     Dates: end: 20170426
  3. TENEX [Suspect]
     Active Substance: GUANFACINE HYDROCHLORIDE
     Indication: ATTENTION DEFICIT/HYPERACTIVITY DISORDER
     Route: 048
     Dates: end: 20170426

REACTIONS (3)
  - Arthralgia [None]
  - Condition aggravated [None]
  - Abnormal behaviour [None]
